FAERS Safety Report 17440672 (Version 2)
Quarter: 2020Q1

REPORT INFORMATION
  Report Type: Spontaneous
  Country: GB (occurrence: GB)
  Receive Date: 20200220
  Receipt Date: 20200324
  Transmission Date: 20200409
  Serious: Yes (Hospitalization, Other)
  Sender: FDA-Public Use
  Company Number: GB-REGENERON PHARMACEUTICALS, INC.-2020-20124

PATIENT

DRUGS (8)
  1. QUININE [Concomitant]
     Active Substance: QUININE
     Indication: MUSCLE SPASMS
     Dosage: 300 MG
     Route: 048
     Dates: start: 201712, end: 201912
  2. OMEPRAZOLE. [Concomitant]
     Active Substance: OMEPRAZOLE
     Indication: ANTACID THERAPY
     Dosage: 20 MG
     Route: 048
     Dates: start: 201703, end: 202001
  3. ATORVASTATIN [Concomitant]
     Active Substance: ATORVASTATIN
     Indication: PRODUCT USED FOR UNKNOWN INDICATION
     Dosage: 20 MG
     Route: 048
     Dates: start: 201505, end: 202001
  4. IRBESARTAN. [Concomitant]
     Active Substance: IRBESARTAN
     Indication: HYPERTENSION
     Dosage: 300 MG
     Route: 048
     Dates: start: 201902, end: 202001
  5. LIBTAYO [Suspect]
     Active Substance: CEMIPLIMAB-RWLC
     Indication: METASTATIC SQUAMOUS CELL CARCINOMA
     Dosage: 350MG EVERY 3 WEEKS IV INFUSION OVER 30 MINUTES
     Route: 042
     Dates: start: 20191128, end: 20191128
  6. LIBTAYO [Suspect]
     Active Substance: CEMIPLIMAB-RWLC
     Dosage: 350MG EVERY 3 WEEKS IV INFUSION OVER 30 MINUTES
     Route: 042
     Dates: start: 20191227, end: 20191227
  7. FOLIC ACID. [Concomitant]
     Active Substance: FOLIC ACID
     Indication: NUTRITIONAL SUPPLEMENTATION
     Dosage: 5 MG
     Route: 048
     Dates: start: 201812, end: 202001
  8. AMLODIPINE [Concomitant]
     Active Substance: AMLODIPINE BESYLATE
     Indication: HYPERTENSION
     Dosage: 10 MG
     Route: 048
     Dates: start: 201507, end: 202001

REACTIONS (2)
  - Pneumonitis [Not Recovered/Not Resolved]
  - Pancytopenia [Recovering/Resolving]

NARRATIVE: CASE EVENT DATE: 20200210
